FAERS Safety Report 18673191 (Version 1)
Quarter: 2020Q4

REPORT INFORMATION
  Report Type: Spontaneous
  Country: GB (occurrence: GB)
  Receive Date: 20201228
  Receipt Date: 20201228
  Transmission Date: 20210114
  Serious: Yes (Other)
  Sender: FDA-Public Use
  Company Number: GB-MYLANLABS-2020M1104016

PATIENT
  Age: 56 Year
  Sex: Male
  Weight: 70 kg

DRUGS (3)
  1. CHAMPIX [Suspect]
     Active Substance: VARENICLINE TARTRATE
     Indication: NICOTINE DEPENDENCE
     Route: 048
     Dates: start: 20201001
  2. IBUPROFEN. [Concomitant]
     Active Substance: IBUPROFEN
  3. CITALOPRAM [Suspect]
     Active Substance: CITALOPRAM HYDROBROMIDE
     Indication: ANXIETY
     Dosage: 20 MILLIGRAM
     Route: 048
     Dates: start: 20131001

REACTIONS (2)
  - Self-injurious ideation [Recovered/Resolved with Sequelae]
  - Mood swings [Recovered/Resolved with Sequelae]

NARRATIVE: CASE EVENT DATE: 20201001
